FAERS Safety Report 13381297 (Version 1)
Quarter: 2017Q1

REPORT INFORMATION
  Report Type: Spontaneous
  Country: IT (occurrence: IT)
  Receive Date: 20170329
  Receipt Date: 20170329
  Transmission Date: 20170429
  Serious: Yes (Other)
  Sender: FDA-Public Use
  Company Number: IT-ROCHE-1912432

PATIENT
  Sex: Male
  Weight: 85 kg

DRUGS (3)
  1. RIBAVIRIN. [Suspect]
     Active Substance: RIBAVIRIN
     Route: 048
     Dates: start: 20160606, end: 20161023
  2. HARVONI [Suspect]
     Active Substance: LEDIPASVIR\SOFOSBUVIR
     Indication: CHRONIC HEPATITIS C
     Dosage: PERIOD: 6 MONTHS
     Route: 048
     Dates: start: 20160509, end: 20161023
  3. RIBAVIRIN. [Suspect]
     Active Substance: RIBAVIRIN
     Indication: CHRONIC HEPATITIS C
     Dosage: .
     Route: 048
     Dates: start: 20160509, end: 20160606

REACTIONS (1)
  - Virologic failure [Not Recovered/Not Resolved]
